FAERS Safety Report 15812316 (Version 1)
Quarter: 2019Q1

REPORT INFORMATION
  Report Type: Spontaneous
  Country: GB (occurrence: GB)
  Receive Date: 20190111
  Receipt Date: 20190111
  Transmission Date: 20190417
  Serious: Yes (Death, Other)
  Sender: FDA-Public Use
  Company Number: GB-MYLANLABS-2019M1001601

PATIENT
  Age: 80 Year
  Sex: Male

DRUGS (5)
  1. PREDNISOLONE. [Suspect]
     Active Substance: PREDNISOLONE
     Indication: TEMPORAL ARTERITIS
     Route: 048
  2. SALBUTAMOL [Concomitant]
     Active Substance: ALBUTEROL
     Indication: ASTHMA
     Route: 055
  3. CYCLOPHOSPHAMIDE. [Suspect]
     Active Substance: CYCLOPHOSPHAMIDE
     Indication: IMMUNOSUPPRESSANT DRUG THERAPY
     Dosage: PULSED THERAPY
     Route: 042
  4. PREDNISOLONE. [Suspect]
     Active Substance: PREDNISOLONE
     Indication: STEROID THERAPY
  5. METHYLPREDNISOLONE. [Suspect]
     Active Substance: METHYLPREDNISOLONE
     Indication: STEROID THERAPY
     Dosage: PULSED THERAPY
     Route: 065

REACTIONS (12)
  - Cognitive disorder [Unknown]
  - Urinary incontinence [Unknown]
  - Somnolence [Unknown]
  - Paraesthesia [Unknown]
  - Blindness [Unknown]
  - Orbital apex syndrome [Unknown]
  - Dysarthria [Unknown]
  - Ophthalmoplegia [Unknown]
  - Optic neuritis [Unknown]
  - Aspergillus infection [Fatal]
  - Ataxia [Unknown]
  - Condition aggravated [Unknown]
